FAERS Safety Report 5419374-8 (Version None)
Quarter: 2007Q3

REPORT INFORMATION
  Report Type: 
  Country: None (occurrence: None)
  Receive Date: 20070816
  Receipt Date: 20070816
  Transmission Date: 20080115
  Serious: Yes (Hospitalization)
  Sender: FDA-Public Use
  Company Number: None

PATIENT
  Age: 32 Year
  Sex: Female
  Weight: 74.8 kg

DRUGS (1)
  1. MACROBID [Suspect]
     Indication: URINARY TRACT INFECTION
     Dosage: 100 MG BID PO
     Route: 048

REACTIONS (5)
  - COUGH [None]
  - DRUG HYPERSENSITIVITY [None]
  - HYPOXIA [None]
  - RESPIRATORY DISTRESS [None]
  - VOMITING [None]
